FAERS Safety Report 13531646 (Version 2)
Quarter: 2018Q1

REPORT INFORMATION
  Report Type: Report from Study
  Country: BR (occurrence: BR)
  Receive Date: 20170510
  Receipt Date: 20180210
  Transmission Date: 20180508
  Serious: Yes (Life-Threatening, Hospitalization, Other)
  Sender: FDA-Public Use
  Company Number: PHHY2017BR067823

PATIENT
  Age: 28 Year
  Sex: Female
  Weight: 57 kg

DRUGS (2)
  1. VITAMIN D [Concomitant]
     Active Substance: CHOLECALCIFEROL
     Indication: PRODUCT USED FOR UNKNOWN INDICATION
     Dosage: UNK
     Route: 065
  2. GILENYA [Suspect]
     Active Substance: FINGOLIMOD HYDROCHLORIDE
     Indication: MULTIPLE SCLEROSIS
     Dosage: 0.5 MG, QD
     Route: 048
     Dates: start: 201310

REACTIONS (36)
  - Multiple sclerosis relapse [Not Recovered/Not Resolved]
  - Hernia [Unknown]
  - Vitamin B complex deficiency [Unknown]
  - Dizziness [Unknown]
  - Hypoaesthesia [Recovered/Resolved]
  - Apparent death [Unknown]
  - Vitamin D deficiency [Unknown]
  - Tremor [Recovered/Resolved]
  - Dysuria [Recovered/Resolved]
  - Dysuria [Recovering/Resolving]
  - Band sensation [Recovered/Resolved]
  - Tremor [Recovering/Resolving]
  - Toothache [Recovering/Resolving]
  - Malaise [Unknown]
  - Hypoaesthesia [Recovering/Resolving]
  - Multiple sclerosis relapse [Recovered/Resolved]
  - Tremor [Recovering/Resolving]
  - Hypoaesthesia [Recovering/Resolving]
  - Vision blurred [Recovering/Resolving]
  - Hypoaesthesia [Not Recovered/Not Resolved]
  - Pain [Unknown]
  - Dysuria [Recovered/Resolved]
  - Multiple sclerosis relapse [Recovered/Resolved]
  - Vision blurred [Recovered/Resolved]
  - Body height decreased [Unknown]
  - Vision blurred [Unknown]
  - Rhinorrhoea [Unknown]
  - Sneezing [Unknown]
  - Hypoaesthesia [Recovered/Resolved]
  - Alopecia [Unknown]
  - Dysuria [Recovering/Resolving]
  - Malaise [Not Recovered/Not Resolved]
  - Dysuria [Not Recovered/Not Resolved]
  - Weight decreased [Not Recovered/Not Resolved]
  - Multiple sclerosis relapse [Recovered/Resolved]
  - Influenza [Recovering/Resolving]

NARRATIVE: CASE EVENT DATE: 201310
